FAERS Safety Report 6183849-7 (Version None)
Quarter: 2009Q2

REPORT INFORMATION
  Report Type: 
  Country: None (occurrence: None)
  Receive Date: 20090508
  Receipt Date: 20090424
  Transmission Date: 20091009
  Serious: Yes (Hospitalization)
  Sender: FDA-Public Use
  Company Number: GB-ROCHE-624727

PATIENT
  Sex: Female
  Weight: 52.3 kg

DRUGS (2)
  1. CELLCEPT [Suspect]
     Indication: VASCULITIS
     Route: 065
  2. CYCLOPHOSPHAMIDE (NON-ROCHE/NON-COMP.) [Suspect]
     Indication: VASCULITIS
     Dosage: DOSAGE FORM :INFUSION
     Route: 042
     Dates: start: 20090302, end: 20090316

REACTIONS (1)
  - SICKLE CELL ANAEMIA WITH CRISIS [None]
